FAERS Safety Report 6025407-0 (Version None)
Quarter: 2008Q4

REPORT INFORMATION
  Report Type: 
  Country: None (occurrence: None)
  Receive Date: 20081224
  Receipt Date: 20081215
  Transmission Date: 20090506
  Serious: Yes (Other)
  Sender: FDA-Public Use
  Company Number: 2008S1022419

PATIENT
  Age: 25 Year
  Sex: Female

DRUGS (2)
  1. AMNESTEEM [Suspect]
     Dosage: 40 MG;TWICE A DAY; ORAL
     Route: 048
     Dates: start: 20081119, end: 20081215
  2. CONTRACEPTIVES NOS [Concomitant]

REACTIONS (2)
  - DRUG EXPOSURE DURING PREGNANCY [None]
  - PREGNANCY ON ORAL CONTRACEPTIVE [None]
